FAERS Safety Report 7728388-4 (Version None)
Quarter: 2011Q3

REPORT INFORMATION
  Report Type: 
  Country: None (occurrence: None)
  Receive Date: 20110905
  Receipt Date: 20110829
  Transmission Date: 20111222
  Serious: Yes (Hospitalization)
  Sender: FDA-Public Use
  Company Number: PHEH2011US02921

PATIENT
  Age: 41 Year
  Sex: Male
  Weight: 113 kg

DRUGS (5)
  1. VALIUM [Concomitant]
     Indication: MUSCLE SPASMS
     Dosage: 10 MG, QD
     Route: 048
     Dates: start: 20110808
  2. BACLOFEN [Concomitant]
     Indication: MULTIPLE SCLEROSIS
     Dosage: 80 MG, QD
     Route: 048
     Dates: start: 20100615
  3. DILAUDID [Concomitant]
     Indication: PAIN
     Dosage: 4 MG, PRN
     Dates: start: 20100801
  4. GILENYA [Suspect]
     Indication: MULTIPLE SCLEROSIS
     Dosage: 0.5 MG, QD
     Route: 048
     Dates: start: 20110201
  5. VENLAFAXINE HCL EXTENDED-RELEASE [Concomitant]
     Dosage: 37.5 MG, QD
     Dates: start: 20110808

REACTIONS (1)
  - BALANCE DISORDER [None]
